FAERS Safety Report 7901474-1 (Version None)
Quarter: 2011Q4

REPORT INFORMATION
  Report Type: 
  Country: None (occurrence: None)
  Receive Date: 20111108
  Receipt Date: 20111028
  Transmission Date: 20120403
  Serious: Yes (Other)
  Sender: FDA-Public Use
  Company Number: US-JNJFOC-20111013335

PATIENT
  Sex: Female
  Weight: 78.93 kg

DRUGS (2)
  1. REMICADE [Suspect]
     Indication: COLITIS ULCERATIVE
     Route: 042
     Dates: start: 20110801
  2. PREDNISONE [Suspect]
     Indication: COLITIS ULCERATIVE
     Route: 048
     Dates: end: 20111014

REACTIONS (5)
  - TOOTH IMPACTED [None]
  - PAIN IN EXTREMITY [None]
  - SWELLING [None]
  - ARTHRALGIA [None]
  - TOOTH INFECTION [None]
